FAERS Safety Report 19550669 (Version 2)
Quarter: 2021Q3

REPORT INFORMATION
  Report Type: Spontaneous
  Country: US (occurrence: US)
  Receive Date: 20210714
  Receipt Date: 20210719
  Transmission Date: 20211014
  Serious: Yes (Other)
  Sender: FDA-Public Use
  Company Number: US-TAKEDA-2021TUS043147

PATIENT
  Sex: Male
  Weight: 84 kg

DRUGS (8)
  1. VYVANSE [Suspect]
     Active Substance: LISDEXAMFETAMINE DIMESYLATE
     Indication: ATTENTION DEFICIT HYPERACTIVITY DISORDER
     Dosage: 40 MILLIGRAM
     Route: 065
     Dates: start: 2008, end: 2008
  2. ASPIRIN  81 MG [Concomitant]
     Active Substance: ASPIRIN
  3. FLUOXETINE [Concomitant]
     Active Substance: FLUOXETINE HYDROCHLORIDE
  4. VYTORIN 10?40 [Concomitant]
  5. LORAZEPAM. [Concomitant]
     Active Substance: LORAZEPAM
  6. VYVANSE [Suspect]
     Active Substance: LISDEXAMFETAMINE DIMESYLATE
     Indication: SOMNOLENCE
     Dosage: 20 MILLIGRAM
     Route: 065
     Dates: start: 2008, end: 2008
  7. LEVOTHYROXINE AND LIOTHYRONINE [Concomitant]
     Indication: THYROID DISORDER
  8. OTC VITAMIN SUPPLEMENTS [Concomitant]

REACTIONS (5)
  - Anxiety [Unknown]
  - Feeling abnormal [Unknown]
  - Therapy interrupted [Unknown]
  - Somnolence [Unknown]
  - Drug dependence [Unknown]
